FAERS Safety Report 8538638-2 (Version None)
Quarter: 2012Q3

REPORT INFORMATION
  Report Type: 
  Country: None (occurrence: None)
  Receive Date: 20120718
  Receipt Date: 20120718
  Transmission Date: 20120928
  Serious: No
  Sender: FDA-Public Use
  Company Number: None

PATIENT
  Age: 64 Year
  Sex: Female
  Weight: 65.7716 kg

DRUGS (1)
  1. CEPHALEXIN [Suspect]
     Indication: INFECTION
     Dosage: 500 MG 3X DA.
     Dates: start: 20120614

REACTIONS (7)
  - MUSCLE SPASMS [None]
  - NAUSEA [None]
  - SKIN HYPERTROPHY [None]
  - DRY SKIN [None]
  - SKIN EXFOLIATION [None]
  - ABDOMINAL DISCOMFORT [None]
  - DIARRHOEA [None]
